FAERS Safety Report 9067268 (Version 1)
Quarter: 2013Q1

REPORT INFORMATION
  Report Type: Spontaneous
  Country: US (occurrence: US)
  Receive Date: 20130202
  Receipt Date: 20130202
  Transmission Date: 20140127
  Serious: Yes (Other)
  Sender: FDA-Public Use
  Company Number: US-AMGEN-USASP2013006258

PATIENT
  Sex: Male

DRUGS (1)
  1. ENBREL [Suspect]
     Indication: PSORIASIS
     Dosage: 50 MG, QWK
     Dates: start: 20091119

REACTIONS (3)
  - Chronic lymphocytic leukaemia [Not Recovered/Not Resolved]
  - Arthralgia [Recovered/Resolved]
  - Cartilage injury [Recovered/Resolved]
